FAERS Safety Report 4810553-7 (Version None)
Quarter: 2005Q4

REPORT INFORMATION
  Report Type: 
  Country: None (occurrence: None)
  Receive Date: 20051025
  Receipt Date: 20051025
  Transmission Date: 20060501
  Serious: Yes (Life-Threatening, Hospitalization)
  Sender: FDA-Public Use
  Company Number: None

PATIENT
  Sex: Male
  Weight: 93.2595 kg

DRUGS (1)
  1. DESMOPRESSIN [Suspect]
     Dosage: IV
     Route: 042
     Dates: start: 20050826, end: 20050826

REACTIONS (7)
  - BRADYCARDIA [None]
  - CARDIO-RESPIRATORY ARREST [None]
  - HYPOTENSION [None]
  - INFUSION RELATED REACTION [None]
  - PULMONARY ARTERIAL PRESSURE INCREASED [None]
  - SINUS TACHYCARDIA [None]
  - VENTRICULAR DYSKINESIA [None]
